FAERS Safety Report 5330614-6 (Version None)
Quarter: 2007Q2

REPORT INFORMATION
  Report Type: 
  Country: None (occurrence: None)
  Receive Date: 20070516
  Receipt Date: 20070508
  Transmission Date: 20071010
  Serious: Yes (Death, Other)
  Sender: FDA-Public Use
  Company Number: 167-21880-07040670

PATIENT

DRUGS (9)
  1. REVLIMID [Suspect]
     Indication: MULTIPLE MYELOMA
     Dosage: 25 MG, QD X 21 DAYS, ORAL
     Route: 048
  2. CYCLOPHOSPHAMIDE [Suspect]
     Indication: MULTIPLE MYELOMA
     Dosage: 500 MG, QD ON DAYS 1, 8, 15, 21 OF 28 DAY CYCLE, ORAL
     Route: 048
  3. DEXAMETHASONE TAB [Suspect]
     Indication: MULTIPLE MYELOMA
     Dosage: 40 MG, QD ON DAYS 1-4, AND 12-15, ORAL
     Route: 048
  4. MELPHALAN (MELPHALAN) [Concomitant]
  5. THALIDOMIDE [Concomitant]
  6. BORTEZOMIB (BORTEZOMIB) [Concomitant]
  7. ACYCLOVIR [Concomitant]
  8. BACTRIM [Concomitant]
  9. PROTON (OMEPRAZOLE) [Concomitant]

REACTIONS (5)
  - DEEP VEIN THROMBOSIS [None]
  - DISEASE PROGRESSION [None]
  - FEBRILE NEUTROPENIA [None]
  - HEPATOTOXICITY [None]
  - NO THERAPEUTIC RESPONSE [None]
